FAERS Safety Report 18336218 (Version 3)
Quarter: 2021Q1

REPORT INFORMATION
  Report Type: Spontaneous
  Country: US (occurrence: US)
  Receive Date: 20201001
  Receipt Date: 20210319
  Transmission Date: 20210419
  Serious: No
  Sender: FDA-Public Use
  Company Number: US-PFIZER INC-2020378861

PATIENT
  Age: 73 Year
  Sex: Female

DRUGS (1)
  1. PREGABALIN. [Suspect]
     Active Substance: PREGABALIN
     Indication: LOCALISED OEDEMA
     Dosage: 50 MG, 3X/DAY
     Route: 048

REACTIONS (1)
  - Off label use [Unknown]
